FAERS Safety Report 8683160 (Version 2)
Quarter: 2012Q4

REPORT INFORMATION
  Report Type: 
  Country: US (occurrence: US)
  Receive Date: 20120726
  Receipt Date: 20120913
  Transmission Date: 20130627
  Serious: No
  Sender: FDA-Public Use
  Company Number: US-009507513-2012SP030921

PATIENT

DRUGS (2)
  1. NASONEX [Suspect]
     Indication: SEASONAL ALLERGY
     Dosage: 1 spray in each nostril once daily
     Route: 045
     Dates: start: 20120502
  2. NASONEX [Suspect]
     Indication: RHINITIS ALLERGIC

REACTIONS (2)
  - Drug dose omission [Unknown]
  - No adverse event [Unknown]
